FAERS Safety Report 11898420 (Version 1)
Quarter: 2016Q1

REPORT INFORMATION
  Report Type: Spontaneous
  Country: US (occurrence: None)
  Receive Date: 20160107
  Receipt Date: 20160107
  Transmission Date: 20160526
  Serious: Yes (Other)
  Sender: FDA-Public Use
  Company Number: None

PATIENT
  Age: 53 Year
  Sex: Female
  Weight: 61.24 kg

DRUGS (9)
  1. NEURONTIN [Concomitant]
     Active Substance: GABAPENTIN
  2. TIZANIDINE. [Concomitant]
     Active Substance: TIZANIDINE
  3. RECLAST [Suspect]
     Active Substance: ZOLEDRONIC ACID
     Indication: OSTEOPOROSIS
     Dosage: ANNUALLY
     Route: 042
  4. CITRICAL W/ D3 [Concomitant]
  5. TYLENOL EXTRA STRENGTH [Concomitant]
     Active Substance: ACETAMINOPHEN
  6. ATORVASTATIN [Concomitant]
     Active Substance: ATORVASTATIN
  7. OXYBUTYNIN [Concomitant]
     Active Substance: OXYBUTYNIN
  8. BACLOFEN. [Concomitant]
     Active Substance: BACLOFEN
  9. CYMBALTA [Concomitant]
     Active Substance: DULOXETINE HYDROCHLORIDE

REACTIONS (7)
  - Arthralgia [None]
  - Insomnia [None]
  - Bone pain [None]
  - Chills [None]
  - Abasia [None]
  - Musculoskeletal chest pain [None]
  - Spinal pain [None]

NARRATIVE: CASE EVENT DATE: 20151209
